FAERS Safety Report 8909223 (Version 1)
Quarter: 2012Q4

REPORT INFORMATION
  Report Type: Spontaneous
  Country: US (occurrence: None)
  Receive Date: 20121113
  Receipt Date: 20121113
  Transmission Date: 20130627
  Serious: Yes (Other)
  Sender: FDA-Public Use
  Company Number: None

PATIENT
  Age: 77 Year
  Sex: Female
  Weight: 57 kg

DRUGS (4)
  1. RETINOL [Suspect]
     Indication: WRINKLES
     Dosage: thumbnail full, BID, Topical
     Route: 061
     Dates: start: 20120704, end: 20120718
  2. ATENOLOL [Concomitant]
  3. LISINOPRIL [Concomitant]
  4. PRAVASTATIN [Concomitant]

REACTIONS (11)
  - Nasal congestion [None]
  - Productive cough [None]
  - Anosmia [None]
  - Chapped lips [None]
  - Lip pain [None]
  - Heart rate decreased [None]
  - Weight decreased [None]
  - Ageusia [None]
  - Asthma [None]
  - Bronchitis [None]
  - Bronchospasm [None]
